FAERS Safety Report 11248490 (Version 2)
Quarter: 2015Q3

REPORT INFORMATION
  Report Type: Spontaneous
  Country: US (occurrence: US)
  Receive Date: 20150708
  Receipt Date: 20150831
  Transmission Date: 20151125
  Serious: No
  Sender: FDA-Public Use
  Company Number: US-ELI_LILLY_AND_COMPANY-US200908003379

PATIENT
  Sex: Female

DRUGS (10)
  1. ORTHO CYCLEN [Concomitant]
     Active Substance: ETHINYL ESTRADIOL\NORGESTIMATE
  2. CLONAZEPAM. [Concomitant]
     Active Substance: CLONAZEPAM
  3. LORAZEPAM. [Concomitant]
     Active Substance: LORAZEPAM
  4. SARAFEM [Suspect]
     Active Substance: FLUOXETINE HYDROCHLORIDE
     Indication: DEPRESSION
     Dates: end: 200905
  5. NECON [Concomitant]
     Active Substance: ETHINYL ESTRADIOL\NORETHINDRONE
  6. PRISTIQ EXTENDED RELEASE [Concomitant]
     Active Substance: DESVENLAFAXINE SUCCINATE
  7. CYMBALTA [Suspect]
     Active Substance: DULOXETINE HYDROCHLORIDE
     Indication: DEPRESSION
     Dosage: UNK, UNK
     Dates: start: 200507
  8. ADDERALL [Concomitant]
     Active Substance: AMPHETAMINE ASPARTATE\AMPHETAMINE SULFATE\DEXTROAMPHETAMINE SACCHARATE\DEXTROAMPHETAMINE SULFATE
  9. ALPRAZOLAM. [Concomitant]
     Active Substance: ALPRAZOLAM
  10. LAMICTAL [Concomitant]
     Active Substance: LAMOTRIGINE

REACTIONS (12)
  - Fatigue [Unknown]
  - Depression [Unknown]
  - Feeling abnormal [Unknown]
  - Memory impairment [Unknown]
  - Alopecia [Unknown]
  - Confusional state [Unknown]
  - Disturbance in attention [Unknown]
  - Arthropathy [Unknown]
  - Limb discomfort [Unknown]
  - Anxiety [Unknown]
  - Hyperhidrosis [Unknown]
  - Asthenia [Unknown]
